FAERS Safety Report 22053259 (Version 2)
Quarter: 2023Q1

REPORT INFORMATION
  Report Type: Other
  Country: GB (occurrence: GB)
  Receive Date: 20230302
  Receipt Date: 20230329
  Transmission Date: 20230418
  Serious: Yes (Other)
  Sender: FDA-Public Use
  Company Number: GB-002147023-NVSC2022GB225873

PATIENT

DRUGS (4)
  1. FULVESTRANT [Suspect]
     Active Substance: FULVESTRANT
     Indication: Breast cancer
     Dosage: UNK
     Route: 065
     Dates: start: 202209
  2. KISQALI [Suspect]
     Active Substance: RIBOCICLIB
     Indication: Breast cancer
     Dosage: UNK
     Route: 048
  3. KISQALI [Suspect]
     Active Substance: RIBOCICLIB
     Dosage: UNK (HOLD SINCE DEC 2022 FOR BRAIN SURGERY, ONGOING) 2ND LINE
     Route: 048
     Dates: start: 202209, end: 202212
  4. SERTRALINE [Concomitant]
     Active Substance: SERTRALINE HYDROCHLORIDE
     Indication: Product used for unknown indication
     Dosage: 50 MILLIGRAM, QD
     Route: 065
     Dates: start: 20221207

REACTIONS (16)
  - Electrocardiogram abnormal [Unknown]
  - Confusional state [Unknown]
  - Feeling of relaxation [Unknown]
  - Lymphoedema [Unknown]
  - Eye pain [Unknown]
  - Joint swelling [Unknown]
  - Neutrophil count decreased [Not Recovered/Not Resolved]
  - Epistaxis [Unknown]
  - Fatigue [Unknown]
  - Back pain [Unknown]
  - Arthralgia [Unknown]
  - Fall [Unknown]
  - Pruritus [Unknown]
  - Pain in extremity [Unknown]
  - Nausea [Not Recovered/Not Resolved]
  - Rash [Not Recovered/Not Resolved]

NARRATIVE: CASE EVENT DATE: 20221102
